FAERS Safety Report 23570219 (Version 2)
Quarter: 2024Q1

REPORT INFORMATION
  Report Type: Report from Study
  Country: HU (occurrence: HU)
  Receive Date: 20240227
  Receipt Date: 20240325
  Transmission Date: 20240410
  Serious: Yes (Death, Hospitalization, Other)
  Sender: FDA-Public Use
  Company Number: HU-ABBVIE-5653035

PATIENT
  Age: 85 Year
  Sex: Male

DRUGS (8)
  1. CARBIDOPA\LEVODOPA [Suspect]
     Active Substance: CARBIDOPA\LEVODOPA
     Indication: Parkinson^s disease
     Dosage: MORNING DOSE: 3.0 ML; CONTINUOUS DOSE: 5.6 ML/HOUR; EXTRA DOSE: 1.5 ML
     Route: 050
     Dates: start: 20200107
  2. CARBIDOPA\LEVODOPA [Suspect]
     Active Substance: CARBIDOPA\LEVODOPA
     Dosage: MORNING DOSE: 3.0 ML; CONTINUOUS DOSE: 5.6 ML/HOUR; EXTRA DOSE: 1.5 ML
     Route: 050
  3. VOLTAREN [Concomitant]
     Active Substance: DICLOFENAC SODIUM
     Indication: Back pain
     Dosage: FORM STRENGTH: 75 MG
     Route: 048
     Dates: start: 2020
  4. FOLIC ACID [Concomitant]
     Active Substance: FOLIC ACID
     Indication: Polyneuropathy
     Dosage: FORM STRENGTH: 3 MG
     Route: 048
     Dates: start: 2021
  5. RAMIPRIL [Concomitant]
     Active Substance: RAMIPRIL
     Indication: Hypertension
     Dosage: FORM STRENGTH: 2.5 MG; FREQUENCY TEXT: HALF TABLET DAILY
     Route: 048
     Dates: start: 2022
  6. FAMOTIDINE [Concomitant]
     Active Substance: FAMOTIDINE
     Indication: Prophylaxis
     Dosage: FORM STRENGTH: 40 MG
     Route: 048
     Dates: start: 2021
  7. CILOSTAZOL [Concomitant]
     Active Substance: CILOSTAZOL
     Indication: Muscle spasms
     Dosage: FORM STRENGTH: 100 MG; FREQUENCY TEXT: 1 TABLET AT NOON
     Route: 048
     Dates: start: 2022
  8. VITAMIN B12 [Concomitant]
     Active Substance: CYANOCOBALAMIN
     Indication: Polyneuropathy
     Dosage: 1 AMPOULE MONTHLY (300 MICROGRAM/ML)
     Route: 030
     Dates: start: 2021

REACTIONS (9)
  - General physical health deterioration [Fatal]
  - Abnormal faeces [Unknown]
  - Asthenia [Not Recovered/Not Resolved]
  - Oesophageal haemorrhage [Unknown]
  - Peripheral artery stenosis [Unknown]
  - Peripheral arterial occlusive disease [Unknown]
  - Peripheral sensorimotor neuropathy [Unknown]
  - Hypertension [Unknown]
  - Unevaluable event [Unknown]

NARRATIVE: CASE EVENT DATE: 20210601
